FAERS Safety Report 11270265 (Version 1)
Quarter: 2015Q3

REPORT INFORMATION
  Report Type: Spontaneous
  Country: FR (occurrence: FR)
  Receive Date: 20150714
  Receipt Date: 20150714
  Transmission Date: 20151125
  Serious: Yes (Hospitalization)
  Sender: FDA-Public Use
  Company Number: FR-TEVA-576422ISR

PATIENT
  Age: 90 Year
  Sex: Female

DRUGS (15)
  1. REMINYL L.P. [Suspect]
     Active Substance: GALANTAMINE
     Indication: DEMENTIA ALZHEIMER^S TYPE
     Dosage: 8 MILLIGRAM DAILY;
     Route: 048
  2. SPASFON [Suspect]
     Active Substance: PHLOROGLUCINOL
     Route: 048
     Dates: start: 20150527
  3. BETASERC [Suspect]
     Active Substance: BETAHISTINE
     Dosage: 48 MILLIGRAM DAILY;
     Route: 048
  4. COAPROVEL 150 MG/12.5 MG [Suspect]
     Active Substance: HYDROCHLOROTHIAZIDE\IRBESARTAN
     Dosage: 1 DOSAGE FORMS DAILY; IRBESARTAN 150 MG / HYDROCHLOROTHIAZIDE 12.5 MG
     Route: 048
  5. DOLENIO [Suspect]
     Active Substance: GLUCOSAMINE
     Dosage: 1 DOSAGE FORMS DAILY;
     Route: 048
  6. PRIMPERAN 10 MG [Suspect]
     Active Substance: METOCLOPRAMIDE HYDROCHLORIDE
     Dosage: 1 TO 3 DOSAGE FORMS PER DAY
     Route: 048
     Dates: start: 20150527
  7. TIAPRIDAL 100MG [Suspect]
     Active Substance: TIAPRIDE HYDROCHLORIDE
     Dosage: .25 DOSAGE FORMS DAILY;
     Route: 048
  8. EBIXA [Suspect]
     Active Substance: MEMANTINE HYDROCHLORIDE
     Indication: DEMENTIA ALZHEIMER^S TYPE
     Dosage: 10 MILLIGRAM DAILY;
     Route: 048
  9. AMLOR [Suspect]
     Active Substance: AMLODIPINE BESYLATE
     Dosage: 5 MILLIGRAM DAILY;
     Route: 048
  10. DOLIPRANE [Suspect]
     Active Substance: ACETAMINOPHEN
     Dosage: 1500 MILLIGRAM DAILY;
     Route: 048
  11. LOPERAMIDE [Suspect]
     Active Substance: LOPERAMIDE
     Route: 048
     Dates: start: 20150527
  12. PARIET [Suspect]
     Active Substance: RABEPRAZOLE SODIUM
     Dosage: 20 MILLIGRAM DAILY;
     Route: 048
  13. IBUFETUM [Suspect]
     Active Substance: IBUPROFEN
     Route: 003
     Dates: start: 20150527
  14. NORSET [Suspect]
     Active Substance: MIRTAZAPINE
     Dosage: 15 MILLIGRAM DAILY;
     Route: 048
  15. IKOREL [Suspect]
     Active Substance: NICORANDIL
     Dosage: 20 MILLIGRAM DAILY;
     Route: 048

REACTIONS (2)
  - Hyponatraemia [Unknown]
  - Loss of consciousness [Unknown]

NARRATIVE: CASE EVENT DATE: 20150604
